FAERS Safety Report 7411728-3 (Version None)
Quarter: 2011Q2

REPORT INFORMATION
  Report Type: 
  Country: None (occurrence: None)
  Receive Date: 20110413
  Receipt Date: 20110113
  Transmission Date: 20111010
  Serious: Yes (Hospitalization, Other)
  Sender: FDA-Public Use
  Company Number: US-BRISTOL-MYERS SQUIBB COMPANY-15429434

PATIENT
  Age: 64 Year
  Sex: Male

DRUGS (12)
  1. DEXAMETHASONE [Concomitant]
     Indication: PREMEDICATION
  2. ERBITUX [Suspect]
     Indication: COLORECTAL CANCER METASTATIC
     Dosage: 100ML SIZE:1000MG-OVER 2 HRS
     Route: 042
     Dates: start: 20101207
  3. ZOFRAN [Concomitant]
     Indication: PREMEDICATION
  4. LYRICA [Concomitant]
  5. RELAFEN [Concomitant]
     Dosage: PRN
  6. AMITRIPTYLINE [Concomitant]
  7. BENTYL [Concomitant]
     Dosage: PRN
  8. ULORIC [Concomitant]
  9. PERCOCET [Concomitant]
  10. BENADRYL [Concomitant]
     Indication: PREMEDICATION
  11. ALLOPURINOL [Concomitant]
  12. REGLAN [Concomitant]
     Dosage: Q6,PRN

REACTIONS (6)
  - DYSPNOEA [None]
  - MALAISE [None]
  - FLUSHING [None]
  - NAUSEA [None]
  - BLOOD PRESSURE DECREASED [None]
  - BLOOD PRESSURE INCREASED [None]
